FAERS Safety Report 13412048 (Version 1)
Quarter: 2017Q2

REPORT INFORMATION
  Report Type: Spontaneous
  Country: US (occurrence: US)
  Receive Date: 20170406
  Receipt Date: 20170406
  Transmission Date: 20170830
  Serious: Yes (Other)
  Sender: FDA-Public Use
  Company Number: US-JNJFOC-20150812870

PATIENT
  Sex: Male

DRUGS (3)
  1. RISPERDAL [Suspect]
     Active Substance: RISPERIDONE
     Indication: BIPOLAR DISORDER
     Route: 048
     Dates: start: 200405, end: 200406
  2. RISPERDAL M-TAB [Suspect]
     Active Substance: RISPERIDONE
     Indication: PRODUCT USED FOR UNKNOWN INDICATION
     Route: 048
  3. RISPERDAL [Suspect]
     Active Substance: RISPERIDONE
     Indication: BIPOLAR DISORDER
     Route: 048
     Dates: start: 200603, end: 200712

REACTIONS (10)
  - Dizziness [Unknown]
  - Galactorrhoea [Unknown]
  - Gynaecomastia [Unknown]
  - Anxiety [Unknown]
  - Hyperprolactinaemia [Unknown]
  - Headache [Unknown]
  - Restlessness [Unknown]
  - Insomnia [Unknown]
  - Extrapyramidal disorder [Unknown]
  - Obesity [Unknown]

NARRATIVE: CASE EVENT DATE: 2004
